FAERS Safety Report 18509338 (Version 3)
Quarter: 2020Q4

REPORT INFORMATION
  Report Type: Spontaneous
  Country: US (occurrence: US)
  Receive Date: 20201117
  Receipt Date: 20201218
  Transmission Date: 20210114
  Serious: Yes (Hospitalization, Other)
  Sender: FDA-Public Use
  Company Number: US-AUROBINDO-AUR-APL-2020-053746

PATIENT
  Sex: Female
  Weight: 60.3 kg

DRUGS (1)
  1. CLOZAPINE TABLET [Suspect]
     Active Substance: CLOZAPINE
     Indication: SCHIZOPHRENIA
     Dosage: 200 MILLIGRAM, DAILY
     Route: 065

REACTIONS (5)
  - Hypertension [Unknown]
  - Hospitalisation [Unknown]
  - Living in residential institution [Unknown]
  - Treatment noncompliance [Unknown]
  - Diabetes mellitus [Unknown]
